FAERS Safety Report 24369368 (Version 1)
Quarter: 2024Q3

REPORT INFORMATION
  Report Type: Report from Study
  Country: US (occurrence: US)
  Receive Date: 20240927
  Receipt Date: 20240927
  Transmission Date: 20241016
  Serious: No
  Sender: ROCHE
  Company Number: US-ROCHE-3437803

PATIENT
  Age: 70 Year
  Sex: Female

DRUGS (17)
  1. LUCENTIS [Suspect]
     Active Substance: RANIBIZUMAB
     Indication: Neovascular age-related macular degeneration
     Route: 065
  2. LUCENTIS [Suspect]
     Active Substance: RANIBIZUMAB
     Indication: Choroidal neovascularisation
  3. AVASTIN [Suspect]
     Active Substance: BEVACIZUMAB
     Indication: Neovascular age-related macular degeneration
     Route: 065
  4. AVASTIN [Suspect]
     Active Substance: BEVACIZUMAB
     Indication: Choroidal neovascularisation
  5. LATANOPROST [Concomitant]
     Active Substance: LATANOPROST
  6. DORZOLAMIDE [Concomitant]
     Active Substance: DORZOLAMIDE
  7. THERATEARS [Concomitant]
     Active Substance: CARBOXYMETHYLCELLULOSE SODIUM
  8. AMLODIPINE [Concomitant]
     Active Substance: AMLODIPINE BESYLATE
  9. ATENOLOL [Concomitant]
     Active Substance: ATENOLOL
  10. VALSARTAN [Concomitant]
     Active Substance: VALSARTAN
  11. TICAGRELOR [Concomitant]
     Active Substance: TICAGRELOR
  12. RANOLAZINE [Concomitant]
     Active Substance: RANOLAZINE
  13. OMEPRAZOLE [Concomitant]
     Active Substance: OMEPRAZOLE
  14. LEVOTHYROXINE [Concomitant]
     Active Substance: LEVOTHYROXINE\LEVOTHYROXINE SODIUM
  15. ATORVASTATIN [Concomitant]
     Active Substance: ATORVASTATIN
  16. BENZONATATE [Concomitant]
     Active Substance: BENZONATATE
  17. ASPIRIN [Concomitant]
     Active Substance: ASPIRIN

REACTIONS (3)
  - Off label use [Unknown]
  - Product dose omission issue [Unknown]
  - No adverse event [Unknown]
